FAERS Safety Report 6114276-6 (Version None)
Quarter: 2009Q1

REPORT INFORMATION
  Report Type: 
  Country: None (occurrence: None)
  Receive Date: 20090312
  Receipt Date: 20081027
  Transmission Date: 20090719
  Serious: No
  Sender: FDA-Public Use
  Company Number: US-ABBOTT-08P-163-0483981-00

PATIENT
  Sex: Male
  Weight: 79.45 kg

DRUGS (2)
  1. DEPAKOTE [Suspect]
     Indication: COMPLEX PARTIAL SEIZURES
     Route: 048
     Dates: start: 20080701
  2. ESOMEPRAZOLE MAGNESIUM [Concomitant]
     Indication: ABDOMINAL DISCOMFORT
     Route: 048

REACTIONS (3)
  - MUSCLE SPASMS [None]
  - MUSCLE STRAIN [None]
  - TREMOR [None]
